FAERS Safety Report 24676059 (Version 1)
Quarter: 2024Q4

REPORT INFORMATION
  Report Type: Spontaneous
  Country: US (occurrence: US)
  Receive Date: 20241128
  Receipt Date: 20241128
  Transmission Date: 20250115
  Serious: Yes (Hospitalization)
  Sender: PFIZER
  Company Number: US-PFIZER INC-202400309924

PATIENT
  Sex: Male

DRUGS (1)
  1. CHANTIX [Suspect]
     Active Substance: VARENICLINE TARTRATE
     Dosage: UNK

REACTIONS (11)
  - Drug hypersensitivity [Unknown]
  - Gait disturbance [Unknown]
  - Insomnia [Unknown]
  - Vomiting [Unknown]
  - Dyspnoea [Unknown]
  - Rash [Unknown]
  - Swelling face [Unknown]
  - Swollen tongue [Unknown]
  - Gingival swelling [Unknown]
  - Mouth swelling [Unknown]
  - Skin exfoliation [Unknown]
